FAERS Safety Report 25297980 (Version 1)
Quarter: 2025Q2

REPORT INFORMATION
  Report Type: Spontaneous
  Country: US (occurrence: US)
  Receive Date: 20250512
  Receipt Date: 20250512
  Transmission Date: 20250716
  Serious: No
  Sender: UCB
  Company Number: US-UCBSA-2024042478

PATIENT
  Sex: Female
  Weight: 92.971 kg

DRUGS (7)
  1. CIMZIA [Suspect]
     Active Substance: CERTOLIZUMAB PEGOL
     Indication: Psoriasis
  2. OTEZLA [Concomitant]
     Active Substance: APREMILAST
     Indication: Psoriasis
  3. HUMIRA [Concomitant]
     Active Substance: ADALIMUMAB
     Indication: Psoriasis
  4. ENBREL [Concomitant]
     Active Substance: ETANERCEPT
     Indication: Psoriasis
  5. METHOTREXATE [Concomitant]
     Active Substance: METHOTREXATE
     Indication: Psoriasis
  6. ZORYVE [Concomitant]
     Active Substance: ROFLUMILAST
     Indication: Psoriasis
  7. VTAMA [Concomitant]
     Active Substance: TAPINAROF
     Indication: Psoriasis

REACTIONS (3)
  - Treatment failure [Unknown]
  - Drug intolerance [Unknown]
  - Contraindicated product administered [Unknown]
